FAERS Safety Report 9646887 (Version 1)
Quarter: 2013Q4

REPORT INFORMATION
  Report Type: Spontaneous
  Country: US (occurrence: US)
  Receive Date: 20131027
  Receipt Date: 20131027
  Transmission Date: 20140711
  Serious: No
  Sender: FDA-Public Use
  Company Number: US-PURDUE-USA-2013-0101252

PATIENT
  Sex: Male

DRUGS (1)
  1. OXYCONTIN (NDA 22-272) [Suspect]
     Indication: INTERVERTEBRAL DISC PROTRUSION
     Dosage: 80 MG, QID
     Route: 048
     Dates: start: 2004

REACTIONS (4)
  - Drug ineffective [Unknown]
  - Inadequate analgesia [Unknown]
  - Drug effect decreased [Unknown]
  - Drug effect delayed [Unknown]
